FAERS Safety Report 22148569 (Version 3)
Quarter: 2023Q2

REPORT INFORMATION
  Report Type: Report from Study
  Country: US (occurrence: US)
  Receive Date: 20230328
  Receipt Date: 20230420
  Transmission Date: 20230721
  Serious: No
  Sender: FDA-Public Use
  Company Number: US-SANOFI-01547327

PATIENT
  Age: 40 Year
  Sex: Female

DRUGS (3)
  1. DUPILUMAB [Suspect]
     Active Substance: DUPILUMAB
     Indication: Dermatitis atopic
     Dosage: 600 MG, 1X
     Route: 058
     Dates: start: 20230324, end: 20230324
  2. DUPILUMAB [Suspect]
     Active Substance: DUPILUMAB
     Indication: Rash
     Dosage: 300 MG, QOW
     Route: 058
     Dates: start: 20230407, end: 20230414
  3. DUPILUMAB [Suspect]
     Active Substance: DUPILUMAB
     Indication: Urticaria

REACTIONS (3)
  - Product use in unapproved indication [Unknown]
  - Incorrect dose administered [Unknown]
  - Injection site reaction [Unknown]

NARRATIVE: CASE EVENT DATE: 20230324
